FAERS Safety Report 5152234-9 (Version None)
Quarter: 2006Q4

REPORT INFORMATION
  Report Type: 
  Country: None (occurrence: None)
  Receive Date: 20061114
  Receipt Date: 20061114
  Transmission Date: 20070319
  Serious: No
  Sender: FDA-Public Use
  Company Number: None

PATIENT
  Sex: Female
  Weight: 46.7205 kg

DRUGS (1)
  1. AVELOX [Suspect]
     Indication: SINUSITIS
     Dosage: ONE TABLET     TWICE A DAY   PO
     Route: 048
     Dates: start: 20060410, end: 20060414

REACTIONS (11)
  - AGITATION [None]
  - ANXIETY [None]
  - BLOOD PRESSURE INCREASED [None]
  - DIARRHOEA [None]
  - DISTURBANCE IN ATTENTION [None]
  - FOOD AVERSION [None]
  - HEADACHE [None]
  - HEART RATE ABNORMAL [None]
  - INSOMNIA [None]
  - TINNITUS [None]
  - VOMITING [None]
